FAERS Safety Report 8168576-9 (Version None)
Quarter: 2012Q1

REPORT INFORMATION
  Report Type: 
  Country: None (occurrence: None)
  Receive Date: 20120227
  Receipt Date: 20120220
  Transmission Date: 20120608
  Serious: Yes (Death)
  Sender: FDA-Public Use
  Company Number: US-GILEAD-2012-0049468

PATIENT
  Sex: Female

DRUGS (15)
  1. LASIX [Concomitant]
  2. LOVASTATIN [Concomitant]
  3. LETAIRIS [Suspect]
     Indication: PULMONARY ARTERIAL HYPERTENSION
     Dosage: 10 MG, UNK
     Route: 048
     Dates: start: 20090101, end: 20120101
  4. OXYGEN [Concomitant]
  5. SYMBYAX [Concomitant]
  6. DILTIAZEM HCL [Concomitant]
  7. KLOR-CON M20 [Concomitant]
  8. PRAVASTATIN [Concomitant]
  9. DIGOXIN [Concomitant]
  10. WARFARIN SODIUM [Concomitant]
  11. REVATIO [Concomitant]
  12. EPOPROSTENOL SODIUM [Concomitant]
  13. LIPITOR [Concomitant]
  14. PAROXETINE HCL [Concomitant]
  15. BOSENTAN [Concomitant]

REACTIONS (1)
  - DEATH [None]
